FAERS Safety Report 6497311-5 (Version None)
Quarter: 2009Q4

REPORT INFORMATION
  Report Type: 
  Country: None (occurrence: None)
  Receive Date: 20091215
  Receipt Date: 20090902
  Transmission Date: 20100525
  Serious: No
  Sender: FDA-Public Use
  Company Number: A0805685A

PATIENT
  Age: 43 Year
  Sex: Female

DRUGS (2)
  1. AVODART [Suspect]
     Route: 048
     Dates: start: 20040401
  2. ALEVE (CAPLET) [Concomitant]

REACTIONS (1)
  - GASTROINTESTINAL PAIN [None]
